FAERS Safety Report 8824779 (Version 2)
Quarter: 2013Q2

REPORT INFORMATION
  Report Type: Report from Study
  Country: MX (occurrence: MX)
  Receive Date: 20121004
  Receipt Date: 20130510
  Transmission Date: 20140414
  Serious: Yes (Death)
  Sender: FDA-Public Use
  Company Number: PHHY2012MX086631

PATIENT
  Age: 63 Year
  Sex: Male

DRUGS (1)
  1. EXFORGE HCT [Suspect]
     Indication: HYPERTENSION
     Dosage: 1 DF (320 MG VALS, 10 MG AMLO AND 25 MG HYDRO), DAILY
     Route: 048
     Dates: start: 201201

REACTIONS (3)
  - Fall [Fatal]
  - Spinal disorder [Fatal]
  - Spinal column injury [Fatal]
